FAERS Safety Report 6013229-6 (Version None)
Quarter: 2008Q4

REPORT INFORMATION
  Report Type: 
  Country: None (occurrence: None)
  Receive Date: 20081219
  Receipt Date: 20081211
  Transmission Date: 20090506
  Serious: Yes (Congenital Anomaly)
  Sender: FDA-Public Use
  Company Number: DE-TEVA-182439ISR

PATIENT

DRUGS (6)
  1. BACTRIM [Suspect]
     Indication: DRUG USE FOR UNKNOWN INDICATION
     Route: 064
     Dates: end: 20060925
  2. VALGANCICLOVIR HCL [Suspect]
     Route: 064
     Dates: start: 20040101, end: 20060925
  3. SAQUINAVIR [Suspect]
     Route: 064
  4. EFAVIRENZ [Suspect]
     Route: 064
     Dates: start: 20050101, end: 20060925
  5. LAMIVUDINE + ZIDOVUDINE [Suspect]
     Dates: start: 20040101
  6. RITONAVIR [Suspect]
     Route: 064
     Dates: start: 20060925, end: 20070201

REACTIONS (3)
  - DEFORMITY [None]
  - NEURAL TUBE DEFECT [None]
  - UROGENITAL DISORDER [None]
